FAERS Safety Report 6129989-X (Version None)
Quarter: 2009Q1

REPORT INFORMATION
  Report Type: 
  Country: None (occurrence: None)
  Receive Date: 20090324
  Receipt Date: 20090324
  Transmission Date: 20090719
  Serious: Yes (Other)
  Sender: FDA-Public Use
  Company Number: FR-WYE-H08605709

PATIENT
  Age: 58 Year
  Sex: Male

DRUGS (5)
  1. TEMSIROLIMUS [Suspect]
     Indication: RENAL CELL CARCINOMA
     Dosage: UNKNOWN
     Route: 042
     Dates: start: 20080301
  2. ATENOLOL [Concomitant]
  3. CLOPIDOGREL [Concomitant]
  4. ATORVASTATIN [Concomitant]
  5. ASPIRIN [Concomitant]

REACTIONS (1)
  - PROTEINURIA [None]
